FAERS Safety Report 4835440-X (Version None)
Quarter: 2005Q4

REPORT INFORMATION
  Report Type: 
  Country: None (occurrence: None)
  Receive Date: 20051122
  Receipt Date: 20051122
  Transmission Date: 20060501
  Serious: Yes (Other)
  Sender: FDA-Public Use
  Company Number: None

PATIENT
  Age: 22 Year
  Sex: Male
  Weight: 187 kg

DRUGS (5)
  1. OLANZAPINE [Suspect]
     Indication: AGGRESSION
     Dosage: 10 MG BEDTIME PO
     Route: 048
     Dates: start: 20050930, end: 20051002
  2. OLANZAPINE [Suspect]
     Indication: AUTISM
     Dosage: 10 MG BEDTIME PO
     Route: 048
     Dates: start: 20050930, end: 20051002
  3. ARIPIPRAZOLE [Concomitant]
  4. SERTRALINE HCL [Concomitant]
  5. PROPRANOLOL [Concomitant]

REACTIONS (1)
  - GRAND MAL CONVULSION [None]
